FAERS Safety Report 8589418-3 (Version None)
Quarter: 2012Q3

REPORT INFORMATION
  Report Type: 
  Country: None (occurrence: None)
  Receive Date: 20120813
  Receipt Date: 20120801
  Transmission Date: 20120928
  Serious: Yes (Disabling)
  Sender: FDA-Public Use
  Company Number: JP-SANOFI-AVENTIS-2012SA045244

PATIENT
  Age: 53 Year
  Sex: Female

DRUGS (3)
  1. CAPECITABINE [Suspect]
     Route: 065
     Dates: start: 20110228, end: 20110401
  2. TAXOTERE [Suspect]
     Route: 065
     Dates: start: 20110228, end: 20110401
  3. PACLITAXEL [Suspect]
     Dosage: 9 COURSES ADMINISTERED
     Route: 065
     Dates: start: 20110425, end: 20111109

REACTIONS (3)
  - ACTIVITIES OF DAILY LIVING IMPAIRED [None]
  - NEUROPATHY PERIPHERAL [None]
  - VISUAL ACUITY REDUCED [None]
